FAERS Safety Report 6139305-5 (Version None)
Quarter: 2009Q2

REPORT INFORMATION
  Report Type: 
  Country: None (occurrence: None)
  Receive Date: 20090401
  Receipt Date: 20090320
  Transmission Date: 20091009
  Serious: Yes (Other)
  Sender: FDA-Public Use
  Company Number: CZ-AMGEN-US340675

PATIENT
  Age: 30 Year
  Sex: Male

DRUGS (1)
  1. ENBREL [Suspect]
     Indication: ANKYLOSING SPONDYLITIS
     Dosage: RESUMED AT UNSPECIFIED DOSE, THEN DISCONTINUED
     Route: 058
     Dates: end: 20090101

REACTIONS (2)
  - OPTIC NEURITIS [None]
  - TUBERCULIN TEST POSITIVE [None]
